FAERS Safety Report 9371328 (Version 1)
Quarter: 2013Q2

REPORT INFORMATION
  Report Type: Spontaneous
  Country: US (occurrence: US)
  Receive Date: 20130627
  Receipt Date: 20130627
  Transmission Date: 20140414
  Serious: No
  Sender: FDA-Public Use
  Company Number: US-BIOGENIDEC-2013BI056944

PATIENT
  Sex: Female

DRUGS (1)
  1. TYSABRI [Suspect]
     Indication: MULTIPLE SCLEROSIS
     Route: 042
     Dates: start: 20121015

REACTIONS (8)
  - Blood glucose abnormal [Unknown]
  - Blood calcium decreased [Unknown]
  - Fluid retention [Not Recovered/Not Resolved]
  - Incontinence [Unknown]
  - Micturition urgency [Unknown]
  - Dermatitis [Recovered/Resolved]
  - Urinary tract infection [Recovered/Resolved]
  - Rash [Recovered/Resolved]
